FAERS Safety Report 4678312-6 (Version None)
Quarter: 2005Q2

REPORT INFORMATION
  Report Type: 
  Country: None (occurrence: None)
  Receive Date: 20050531
  Receipt Date: 20050531
  Transmission Date: 20051028
  Serious: Yes (Hospitalization)
  Sender: FDA-Public Use
  Company Number: None

PATIENT
  Age: 62 Year
  Sex: Female
  Weight: 62.5964 kg

DRUGS (2)
  1. ESTRADIOL/NORETHINDRONE ACETATE 1.0 MG/0.5 MG WATSON LABORATORIES [Suspect]
     Dosage: 2 TABLETS ONCE ORAL
     Route: 048
     Dates: start: 20050422, end: 20050422
  2. ESTRADIOL/NORETHINDRONE ACETATE 1.0 MG/0.5 MG WATSON LABORATORIES [Suspect]
     Dosage: 2 TABLETS ONCE ORAL
     Route: 048
     Dates: start: 20050506, end: 20050506

REACTIONS (1)
  - HIP FRACTURE [None]
